FAERS Safety Report 19482054 (Version 2)
Quarter: 2021Q3

REPORT INFORMATION
  Report Type: Report from Study
  Country: BE (occurrence: BE)
  Receive Date: 20210701
  Receipt Date: 20210805
  Transmission Date: 20211014
  Serious: Yes (Hospitalization)
  Sender: FDA-Public Use
  Company Number: BE-JNJFOC-20210645756

PATIENT
  Age: 61 Year
  Sex: Male
  Weight: 67.7 kg

DRUGS (7)
  1. ERDAFITINIB. [Suspect]
     Active Substance: ERDAFITINIB
     Indication: GLIOBLASTOMA
     Route: 048
     Dates: start: 20210322, end: 20210609
  2. IMODIUM [Concomitant]
     Active Substance: LOPERAMIDE HYDROCHLORIDE
     Indication: DIARRHOEA
     Dates: start: 20210409, end: 20210515
  3. DICLOFENAC [Concomitant]
     Active Substance: DICLOFENAC
     Indication: SCIATICA
     Dates: start: 20210504, end: 20210614
  4. ARTIFICIAL TEARS [Concomitant]
     Active Substance: GLYCERIN\HYPROMELLOSES\POLYETHYLENE GLYCOL 400
     Indication: DRY EYE
     Dates: start: 20210322
  5. ALLOPURINOL. [Concomitant]
     Active Substance: ALLOPURINOL
     Indication: HYPERURICAEMIA
     Dates: start: 2011, end: 20210620
  6. DEPAKINE [Concomitant]
     Active Substance: VALPROATE SODIUM
     Indication: GLIOBLASTOMA
     Dates: start: 20200804
  7. RENVELA [Concomitant]
     Active Substance: SEVELAMER CARBONATE
     Indication: HYPERPHOSPHATAEMIA
     Dates: start: 20210427, end: 20210623

REACTIONS (3)
  - Asthenia [Recovering/Resolving]
  - Decreased appetite [Recovering/Resolving]
  - General physical health deterioration [Recovering/Resolving]

NARRATIVE: CASE EVENT DATE: 20210620
